FAERS Safety Report 16187756 (Version 2)
Quarter: 2019Q2

REPORT INFORMATION
  Report Type: Report from Study
  Country: RU (occurrence: RU)
  Receive Date: 20190412
  Receipt Date: 20190502
  Transmission Date: 20190711
  Serious: Yes (Other)
  Sender: FDA-Public Use
  Company Number: RU-ASTRAZENECA-2019SE54422

PATIENT
  Age: 56 Year
  Sex: Female
  Weight: 87.6 kg

DRUGS (5)
  1. HERBAL PREPARATIONS [Concomitant]
  2. ENAP [Concomitant]
     Active Substance: ENALAPRIL
  3. BRILINTA [Suspect]
     Active Substance: TICAGRELOR
     Indication: MYOCARDIAL INFARCTION
     Route: 048
     Dates: start: 201809
  4. TORVACARD [Concomitant]
     Active Substance: ATORVASTATIN CALCIUM
  5. NORMODIPIN [Concomitant]

REACTIONS (6)
  - Gastritis [Not Recovered/Not Resolved]
  - Headache [Unknown]
  - Contusion [Not Recovered/Not Resolved]
  - Haemorrhage [Unknown]
  - Pancreatitis [Not Recovered/Not Resolved]
  - Lipoma [Not Recovered/Not Resolved]

NARRATIVE: CASE EVENT DATE: 201902
